FAERS Safety Report 21119384 (Version 1)
Quarter: 2022Q3

REPORT INFORMATION
  Report Type: Spontaneous
  Country: US (occurrence: None)
  Receive Date: 20220721
  Receipt Date: 20220721
  Transmission Date: 20221026
  Serious: Yes (Other)
  Sender: FDA-Public Use
  Company Number: None

PATIENT
  Age: 68 Year
  Sex: Female
  Weight: 87.75 kg

DRUGS (1)
  1. MAGNESIUM CITRATE LEMON [Suspect]
     Active Substance: MAGNESIUM CITRATE
     Indication: Bowel preparation
     Dates: start: 20220420, end: 20220721

REACTIONS (2)
  - Urinary tract infection [None]
  - Beta haemolytic streptococcal infection [None]

NARRATIVE: CASE EVENT DATE: 20220422
